FAERS Safety Report 7135697-9 (Version None)
Quarter: 2010Q4

REPORT INFORMATION
  Report Type: 
  Country: None (occurrence: None)
  Receive Date: 20101203
  Receipt Date: 20101124
  Transmission Date: 20110411
  Serious: Yes (Hospitalization)
  Sender: FDA-Public Use
  Company Number: JP-ABBOTT-10P-087-0682419-00

PATIENT
  Age: 17 Year
  Sex: Male
  Weight: 62 kg

DRUGS (1)
  1. SEVOFLURANE [Suspect]
     Indication: ANAESTHESIA
     Route: 055

REACTIONS (2)
  - HYPOTENSION [None]
  - URINE OUTPUT DECREASED [None]
